FAERS Safety Report 11185776 (Version 1)
Quarter: 2015Q2

REPORT INFORMATION
  Report Type: Report from Study
  Country: GB (occurrence: GB)
  Receive Date: 20150612
  Receipt Date: 20150612
  Transmission Date: 20150821
  Serious: Yes (Hospitalization)
  Sender: FDA-Public Use
  Company Number: GB-ASTRAZENECA-2014SE21342

PATIENT
  Age: 26376 Day
  Sex: Male
  Weight: 95.2 kg

DRUGS (18)
  1. AZD2281 [Suspect]
     Active Substance: OLAPARIB
     Indication: RECTOSIGMOID CANCER
     Route: 048
     Dates: start: 20140311, end: 20140311
  2. DOXAZOSIN [Concomitant]
     Active Substance: DOXAZOSIN\DOXAZOSIN MESYLATE
     Indication: HYPERTENSION
     Route: 048
  3. DAKTACORT [Concomitant]
     Active Substance: HYDROCORTISONE\MICONAZOLE NITRATE
     Indication: RASH
     Dosage: BID
     Route: 003
  4. ITRACONAZOLE. [Suspect]
     Active Substance: ITRACONAZOLE
     Indication: RECTOSIGMOID CANCER
     Dosage: 200 MG DAILY, ON DAYS 5 TO 11 IN PART A
     Route: 048
     Dates: start: 20140307, end: 20140313
  5. LOSARTAN [Concomitant]
     Active Substance: LOSARTAN
     Indication: HYPERTENSION
     Route: 048
  6. TAMSULOSIN [Concomitant]
     Active Substance: TAMSULOSIN
     Indication: BENIGN PROSTATIC HYPERPLASIA
     Route: 048
  7. ACICLOVIR [Concomitant]
     Active Substance: ACYCLOVIR
     Indication: HERPES VIRUS INFECTION
     Route: 048
     Dates: end: 20140324
  8. AZD2281 [Suspect]
     Active Substance: OLAPARIB
     Indication: RECTOSIGMOID CANCER
     Route: 048
     Dates: start: 20140303, end: 20140303
  9. GLICAZIDE [Concomitant]
     Active Substance: GLICLAZIDE
     Indication: TYPE 2 DIABETES MELLITUS
     Route: 048
  10. LANSOPRAZOLE. [Concomitant]
     Active Substance: LANSOPRAZOLE
     Indication: GASTRITIS PROPHYLAXIS
     Route: 048
  11. LOPERAMIDE [Concomitant]
     Active Substance: LOPERAMIDE
     Indication: DIARRHOEA
     Route: 048
     Dates: start: 20140316
  12. LOPERAMIDE [Concomitant]
     Active Substance: LOPERAMIDE
     Indication: DIARRHOEA
     Route: 048
     Dates: end: 20140224
  13. LOPERAMIDE [Concomitant]
     Active Substance: LOPERAMIDE
     Indication: DIARRHOEA
     Route: 048
     Dates: start: 20140305, end: 20140305
  14. AZD2281 [Suspect]
     Active Substance: OLAPARIB
     Indication: RECTOSIGMOID CANCER
     Route: 048
     Dates: start: 20140320, end: 20140324
  15. AZD2281 [Suspect]
     Active Substance: OLAPARIB
     Indication: RECTOSIGMOID CANCER
     Route: 048
     Dates: start: 20140401, end: 20140515
  16. METFORMIN [Concomitant]
     Active Substance: METFORMIN HYDROCHLORIDE
     Indication: TYPE 2 DIABETES MELLITUS
     Route: 048
  17. BENDROFLUMETHIAZIDE [Concomitant]
     Active Substance: BENDROFLUMETHIAZIDE
     Indication: HYPERTENSION
     Route: 048
     Dates: end: 20140324
  18. BISOPROLOL [Concomitant]
     Active Substance: BISOPROLOL
     Indication: HYPERTENSION
     Route: 048

REACTIONS (1)
  - Renal impairment [Recovered/Resolved]

NARRATIVE: CASE EVENT DATE: 20140322
